FAERS Safety Report 9576253 (Version 1)
Quarter: 2013Q4

REPORT INFORMATION
  Report Type: Spontaneous
  Country: US (occurrence: US)
  Receive Date: 20131001
  Receipt Date: 20131001
  Transmission Date: 20140711
  Serious: No
  Sender: FDA-Public Use
  Company Number: US-AMGEN-USASP2013001987

PATIENT
  Sex: Female
  Weight: 67.12 kg

DRUGS (10)
  1. ENBREL [Suspect]
     Indication: PRODUCT USED FOR UNKNOWN INDICATION
     Dosage: 50 MG, QWK
     Route: 058
  2. XYZAL [Concomitant]
     Dosage: 5 MG, UNK
  3. TYLENOL WITH CODEIN #3 [Concomitant]
     Dosage: UNK
  4. LEFLUNOMIDE [Concomitant]
     Dosage: 10 MG, UNK
  5. ATENOLOL [Concomitant]
     Dosage: 100 MG, UNK
  6. LEVOTHYROXIN [Concomitant]
     Dosage: 112 MUG, UNK
  7. POTASSIUM                          /00031417/ [Concomitant]
     Dosage: 75 MG, UNK
  8. MULTIVITAMINS, PLAIN [Concomitant]
     Dosage: UNK
  9. CALCIUM +D                         /00944201/ [Concomitant]
     Dosage: UNK
  10. IRON PLUS                          /00292601/ [Concomitant]
     Dosage: UNK

REACTIONS (1)
  - Staphylococcal infection [Unknown]
